FAERS Safety Report 18735909 (Version 1)
Quarter: 2021Q1

REPORT INFORMATION
  Report Type: Spontaneous
  Country: IN (occurrence: IN)
  Receive Date: 20210113
  Receipt Date: 20210113
  Transmission Date: 20210419
  Serious: Yes (Life-Threatening, Hospitalization)
  Sender: FDA-Public Use
  Company Number: IN-MYLANLABS-2021M1001589

PATIENT
  Age: 32 Year
  Sex: Female

DRUGS (4)
  1. BUPIVACAINE. [Suspect]
     Active Substance: BUPIVACAINE
     Indication: EPIDURAL ANALGESIA
     Dosage: LOADING DOSE
     Route: 008
  2. FENTANYL. [Suspect]
     Active Substance: FENTANYL
     Indication: EPIDURAL ANALGESIA
     Dosage: 2 MCG/ML LOADING DOSE
     Route: 008
  3. EPHEDRINE. [Suspect]
     Active Substance: EPHEDRINE
     Indication: HYPOTENSION
     Dosage: 5 MILLIGRAM, THREE BOLUS DOSES OF 5 MG EPHEDRINE (DILUTED IN 0.9% SODIUM CHLORIDE)
     Route: 040
  4. SODIUM CHLORIDE. [Suspect]
     Active Substance: SODIUM CHLORIDE
     Indication: HYPOTENSION
     Dosage: THREE BOLUS DOSES OF 5 MG EPHEDRINE (DILUTED IN 0.9% SODIUM CHLORIDE)
     Route: 040

REACTIONS (3)
  - Maternal exposure during pregnancy [Recovered/Resolved]
  - Stress cardiomyopathy [Recovered/Resolved]
  - Hypotension [Recovered/Resolved]
